FAERS Safety Report 20350895 (Version 2)
Quarter: 2022Q1

REPORT INFORMATION
  Report Type: Spontaneous
  Country: JP (occurrence: JP)
  Receive Date: 20220119
  Receipt Date: 20220204
  Transmission Date: 20220423
  Serious: Yes (Other)
  Sender: FDA-Public Use
  Company Number: JP-OTSUKA-2022_000941

PATIENT
  Age: 91 Year
  Sex: Female

DRUGS (6)
  1. SAMSCA [Suspect]
     Active Substance: TOLVAPTAN
     Indication: Oedema due to cardiac disease
     Dosage: 3.75 MG, QD
     Route: 048
     Dates: start: 20211123, end: 20211129
  2. SAMSCA [Suspect]
     Active Substance: TOLVAPTAN
     Indication: Cardiac failure chronic
  3. FUROSEMIDE [Concomitant]
     Active Substance: FUROSEMIDE
     Indication: Product used for unknown indication
     Dosage: 120/DAY,UNK
     Route: 048
     Dates: start: 20211118
  4. SPIRONOLACTONE [Concomitant]
     Active Substance: SPIRONOLACTONE
     Indication: Product used for unknown indication
     Dosage: 50/DAY, UNK
     Route: 048
     Dates: start: 20211118, end: 20211206
  5. XARELTO [Concomitant]
     Active Substance: RIVAROXABAN
     Indication: Product used for unknown indication
     Dosage: 10/DAY, UNK
     Route: 048
  6. ATORVASTATIN CALCIUM TRIHYDRATE [Concomitant]
     Active Substance: ATORVASTATIN CALCIUM TRIHYDRATE
     Indication: Product used for unknown indication
     Dosage: 5/DAY, UNK
     Route: 048

REACTIONS (3)
  - Renal impairment [Recovered/Resolved]
  - Hepatic function abnormal [Recovered/Resolved]
  - Underdose [Unknown]

NARRATIVE: CASE EVENT DATE: 20211129
